FAERS Safety Report 7819961-3 (Version None)
Quarter: 2011Q4

REPORT INFORMATION
  Report Type: 
  Country: None (occurrence: None)
  Receive Date: 20111018
  Receipt Date: 20100820
  Transmission Date: 20120403
  Serious: No
  Sender: FDA-Public Use
  Company Number: US-ASTRAZENECA-2010SE39292

PATIENT
  Sex: Male
  Weight: 81.6 kg

DRUGS (2)
  1. SYMBICORT [Suspect]
     Dosage: ONE PER DAY
     Route: 055
  2. SYMBICORT [Suspect]
     Indication: ASTHMA
     Dosage: BID
     Route: 055
     Dates: start: 20100701

REACTIONS (4)
  - WHEEZING [None]
  - INCORRECT DOSE ADMINISTERED [None]
  - COUGH [None]
  - DRUG DOSE OMISSION [None]
